FAERS Safety Report 9019448 (Version 1)
Quarter: 2013Q1

REPORT INFORMATION
  Report Type: Spontaneous
  Country: US (occurrence: US)
  Receive Date: 20130118
  Receipt Date: 20130118
  Transmission Date: 20140127
  Serious: No
  Sender: FDA-Public Use
  Company Number: US-BAYER-2013-006720

PATIENT
  Sex: Female
  Weight: 53.52 kg

DRUGS (3)
  1. ALEVE CAPLET/TABLET,MIDOL EXTENDED RELIEF CAPLET [Suspect]
     Indication: PAIN
     Dosage: 2 DF, PRN
     Route: 048
     Dates: start: 20121205, end: 20130104
  2. LIPITOR [Concomitant]
  3. ALMADINE [Concomitant]
     Dosage: UNK

REACTIONS (1)
  - Rash macular [Recovered/Resolved]
